FAERS Safety Report 16287641 (Version 1)
Quarter: 2019Q2

REPORT INFORMATION
  Report Type: Spontaneous
  Country: FR (occurrence: FR)
  Receive Date: 20190508
  Receipt Date: 20190508
  Transmission Date: 20190711
  Serious: Yes (Other)
  Sender: FDA-Public Use
  Company Number: FR-MYLANLABS-2019M1043048

PATIENT
  Age: 62 Year
  Sex: Male
  Weight: 50.4 kg

DRUGS (2)
  1. INEXIUM                            /01479302/ [Suspect]
     Active Substance: ESOMEPRAZOLE MAGNESIUM
     Indication: OESOPHAGITIS ULCERATIVE
     Dosage: 80 MILLIGRAM, QD
     Route: 048
  2. MINOCYCLINE MYLAN [Suspect]
     Active Substance: MINOCYCLINE\MINOCYCLINE HYDROCHLORIDE
     Indication: BRAIN ABSCESS
     Dosage: 100 MILLIGRAM
     Route: 048
     Dates: start: 20140220

REACTIONS (1)
  - Leukopenia [Not Recovered/Not Resolved]

NARRATIVE: CASE EVENT DATE: 20140411
